FAERS Safety Report 8095462-5 (Version None)
Quarter: 2012Q1

REPORT INFORMATION
  Report Type: 
  Country: None (occurrence: None)
  Receive Date: 20120129
  Receipt Date: 20111214
  Transmission Date: 20120608
  Serious: No
  Sender: FDA-Public Use
  Company Number: US-ABBOTT-11P-163-0884228-00

PATIENT
  Age: 39 Year
  Sex: Female

DRUGS (4)
  1. HUMIRA [Suspect]
     Indication: PSORIATIC ARTHROPATHY
     Dates: start: 20110301, end: 20111207
  2. METHOTREXATE [Concomitant]
     Indication: PSORIATIC ARTHROPATHY
     Dosage: 3 TABS WEEKLY
  3. AMBIEN [Concomitant]
     Indication: INSOMNIA
     Dosage: 10 MG - 1/2 TABLET AS NEEDED
  4. LEUCOVORIN CALCIUM [Concomitant]
     Indication: PSORIATIC ARTHROPATHY
     Dosage: EVERY WEEK WITH METHOTREXATE

REACTIONS (4)
  - NASOPHARYNGITIS [None]
  - UPPER RESPIRATORY TRACT CONGESTION [None]
  - RHINORRHOEA [None]
  - COUGH [None]
